FAERS Safety Report 5258977-0 (Version None)
Quarter: 2007Q1

REPORT INFORMATION
  Report Type: 
  Country: None (occurrence: None)
  Receive Date: 20070308
  Receipt Date: 20070226
  Transmission Date: 20070707
  Serious: Yes (Hospitalization)
  Sender: FDA-Public Use
  Company Number: FR-ROCHE-484637

PATIENT
  Age: 68 Year
  Sex: Female

DRUGS (7)
  1. BONVIVA [Suspect]
     Indication: OSTEOPOROSIS
     Route: 048
  2. IMOVANE [Concomitant]
     Dosage: PRESCRIPTION AFTER THE EVENT ONSET: ZOPICLONE 7.5, ONE DOSE FORM IN THE EVENING.
  3. MOPRAL [Concomitant]
     Dosage: PRESCRIPTION AFTER THE EVENT ONSET: OMEPRAZOLE 40, ONE DOSE FORM IN THE EVENING.
  4. CALCIDOSE [Concomitant]
     Dosage: PRESCRIPTION AFTER THE EVENT ONSET: ONE DOSE FORM IN THE MORNING.
  5. PRAVASTATIN [Concomitant]
     Dosage: PRESCRIPTION AFTER THE EVENT ONSET: 0.5 TABLET PER DAY.
  6. PLAVIX [Concomitant]
     Dosage: PRESCRIPTION AFTER THE EVENT ONSET: ONE DOSE PER DAY.
  7. TENORMIN [Concomitant]
     Dosage: BEFORE THE EVENT ONSET: 0.25 TABLETS TWICE DAILY, AFTER THE EVENT ONSET: 0.25 TABLETS IN THE EVENIN+

REACTIONS (1)
  - HYPOTENSION [None]
